FAERS Safety Report 4349730-0 (Version None)
Quarter: 2004Q2

REPORT INFORMATION
  Report Type: 
  Country: None (occurrence: None)
  Receive Date: 20040429
  Receipt Date: 20040114
  Transmission Date: 20050107
  Serious: Yes (Death, Life-Threatening, Hospitalization)
  Sender: FDA-Public Use
  Company Number: 200410331US

PATIENT
  Sex: 0

DRUGS (15)
  1. TAXOTERE [Suspect]
     Indication: NON-SMALL CELL LUNG CANCER
     Route: 042
     Dates: start: 20031027, end: 20031208
  2. BENZYLHYDROCHLORTHIAZIDE [Concomitant]
  3. K-DUR 10 [Concomitant]
  4. PROSCAR [Concomitant]
  5. LOVASTATIN [Concomitant]
  6. CELEBREX [Concomitant]
  7. ALBUTEROL [Concomitant]
  8. ATROVENT [Concomitant]
  9. RESTORIL [Concomitant]
  10. MEDROL [Concomitant]
  11. DECADRON [Concomitant]
  12. PREVACID [Concomitant]
  13. LEVAQUIN [Concomitant]
  14. FLAGYL [Concomitant]
  15. VICODIN [Concomitant]

REACTIONS (16)
  - ACTIVATED PARTIAL THROMBOPLASTIN TIME PROLONGED [None]
  - ALANINE AMINOTRANSFERASE INCREASED [None]
  - ASTHENIA [None]
  - DIVERTICULAR PERFORATION [None]
  - GENERAL PHYSICAL HEALTH DETERIORATION [None]
  - HAEMATOCRIT DECREASED [None]
  - INTERNATIONAL NORMALISED RATIO INCREASED [None]
  - LEUKOPENIA [None]
  - NEUTROPENIA [None]
  - PNEUMOPERITONEUM [None]
  - PNEUMOTHORAX [None]
  - PROTHROMBIN TIME PROLONGED [None]
  - RED BLOOD CELL COUNT DECREASED [None]
  - RENAL FAILURE [None]
  - SEPSIS [None]
  - THROMBOCYTOPENIA [None]
